FAERS Safety Report 26027965 (Version 2)
Quarter: 2025Q4

REPORT INFORMATION
  Report Type: Report from Study
  Country: US (occurrence: US)
  Receive Date: 20251111
  Receipt Date: 20251212
  Transmission Date: 20260117
  Serious: Yes (Other)
  Sender: TEVA
  Company Number: US-TEVA-VS-3390189

PATIENT
  Age: 33 Year
  Sex: Female

DRUGS (1)
  1. CLARAVIS [Suspect]
     Active Substance: ISOTRETINOIN
     Indication: Product used for unknown indication
     Route: 065
     Dates: start: 20251012, end: 20251104

REACTIONS (5)
  - Unintended pregnancy [Unknown]
  - Abortion spontaneous [Unknown]
  - Muscle spasms [Unknown]
  - Morning sickness [Unknown]
  - Pain [Unknown]

NARRATIVE: CASE EVENT DATE: 20250101
